FAERS Safety Report 7619620-6 (Version None)
Quarter: 2011Q3

REPORT INFORMATION
  Report Type: 
  Country: None (occurrence: None)
  Receive Date: 20110719
  Receipt Date: 20090930
  Transmission Date: 20111222
  Serious: Yes (Other)
  Sender: FDA-Public Use
  Company Number: US-BAYER-200934736NA

PATIENT
  Age: 57 Year
  Sex: Female
  Weight: 104 kg

DRUGS (16)
  1. PROTONIX [Concomitant]
     Dosage: 40 MG, ONCE
     Route: 048
  2. METOPROLOL TARTRATE [Concomitant]
     Dosage: 50 MG, BID
     Route: 048
  3. VECURONIUM BROMIDE [Concomitant]
     Dosage: UNK
     Route: 042
     Dates: start: 20060509, end: 20060509
  4. INSULIN [Concomitant]
     Dosage: 70/30 30UNITSEVERY MORNING  AND 8UNITS EVERYNIGHT
     Route: 058
  5. INSULIN [Concomitant]
     Route: 042
  6. EPOGEN [Concomitant]
     Dosage: 10,000 UNITS TWICE WEEKLY
     Route: 058
  7. ALPRAZOLAM [Concomitant]
     Dosage: 0.5 MG, BID
     Route: 048
  8. LASIX [Concomitant]
     Dosage: 80 MG, BID
     Route: 048
  9. TRASYLOL [Suspect]
     Dosage: 200ML LOADING DOSE
     Route: 042
     Dates: start: 20060509, end: 20060509
  10. ISOSORBIDE MONONITRATE [Concomitant]
     Dosage: 120 MG, ONCE
     Route: 048
  11. NORVASC [Concomitant]
     Dosage: 10 MG, ONCE
     Route: 048
  12. MIDAZOLAM HCL [Concomitant]
     Dosage: 2 MG, ONCE
     Route: 042
     Dates: start: 20060509, end: 20060509
  13. MIDAZOLAM HCL [Concomitant]
     Dosage: 1MG TWICE
     Route: 042
     Dates: start: 20060509, end: 20060509
  14. ZOCOR [Concomitant]
     Dosage: 40 MG, ONCE
     Route: 048
  15. FENTANYL-100 [Concomitant]
     Dosage: 25MCG TWICE
     Route: 042
     Dates: start: 20060509, end: 20060509
  16. TRASYLOL [Suspect]
     Indication: CORONARY REVASCULARISATION
     Dosage: 1 ML, ONCE, INITIAL TEST DOSE
     Route: 042
     Dates: start: 20060509, end: 20060509

REACTIONS (8)
  - DEPRESSION [None]
  - ANHEDONIA [None]
  - UNEVALUABLE EVENT [None]
  - FEAR [None]
  - PAIN [None]
  - RENAL FAILURE [None]
  - INJURY [None]
  - ANXIETY [None]
